FAERS Safety Report 9865601 (Version 2)
Quarter: 2014Q1

REPORT INFORMATION
  Report Type: Spontaneous
  Country: US (occurrence: US)
  Receive Date: 20140203
  Receipt Date: 20140203
  Transmission Date: 20141002
  Serious: No
  Sender: FDA-Public Use
  Company Number: US-ALLERGAN-1305130US

PATIENT
  Age: 60 Year
  Sex: Female

DRUGS (2)
  1. RESTASIS [Suspect]
     Indication: DRY EYE
     Dosage: 2 GTT, BID
     Route: 047
  2. PARKINSON^S MEDICATIONS NOS [Concomitant]
     Indication: PARKINSON^S DISEASE
     Dosage: UNK

REACTIONS (4)
  - Scleral oedema [Recovered/Resolved]
  - Superficial injury of eye [Recovered/Resolved]
  - Scleral hyperaemia [Recovered/Resolved]
  - Lacrimation increased [Recovered/Resolved]
